FAERS Safety Report 20763471 (Version 7)
Quarter: 2023Q2

REPORT INFORMATION
  Report Type: Spontaneous
  Country: US (occurrence: US)
  Receive Date: 20220428
  Receipt Date: 20230628
  Transmission Date: 20230722
  Serious: Yes (Other)
  Sender: FDA-Public Use
  Company Number: US-PFIZER INC-202200475640

PATIENT
  Age: 80 Year
  Sex: Female

DRUGS (3)
  1. IBRANCE [Suspect]
     Active Substance: PALBOCICLIB
     Indication: Breast cancer female
     Dosage: 125 MG
  2. IBRANCE [Suspect]
     Active Substance: PALBOCICLIB
     Dosage: 100 MG
  3. IBRANCE [Suspect]
     Active Substance: PALBOCICLIB
     Dosage: 75 MG (3X7 UD TAB 21)
     Dates: start: 202203

REACTIONS (12)
  - Eye operation [Unknown]
  - Dysgeusia [Unknown]
  - Decreased appetite [Unknown]
  - Weight decreased [Unknown]
  - Blood test abnormal [Unknown]
  - Muscular weakness [Unknown]
  - Pain [Unknown]
  - Lacrimation increased [Unknown]
  - Hypoacusis [Unknown]
  - Visual impairment [Unknown]
  - Poor quality product administered [Unknown]
  - Product quality issue [Unknown]
